FAERS Safety Report 17011583 (Version 2)
Quarter: 2019Q4

REPORT INFORMATION
  Report Type: Spontaneous
  Country: US (occurrence: US)
  Receive Date: 20191108
  Receipt Date: 20191109
  Transmission Date: 20200122
  Serious: No
  Sender: FDA-Public Use
  Company Number: US-TEVA-2019-US-1132907

PATIENT
  Age: 39 Year
  Sex: Female

DRUGS (1)
  1. DEXTROAMPHET SACCHARAT, AMPHET ASPARTATE, DEXTROAMPHET SULFATE AND AMPHET SULFAT [Suspect]
     Active Substance: AMPHETAMINE ASPARTATE\AMPHETAMINE SULFATE\DEXTROAMPHETAMINE SACCHARATE\DEXTROAMPHETAMINE SULFATE
     Indication: ATTENTION DEFICIT/HYPERACTIVITY DISORDER
     Dosage: 30 MILLIGRAM DAILY; BREAKS THE 20MG TABLET IN HALF; PATIENT BEGIN TAKING THE PRODUCT SINCE 19 YEARS
     Route: 065

REACTIONS (5)
  - Feeling hot [Unknown]
  - Flushing [Unknown]
  - Nervousness [Unknown]
  - Product physical issue [Unknown]
  - Disturbance in attention [Unknown]
